FAERS Safety Report 7935253-6 (Version None)
Quarter: 2011Q4

REPORT INFORMATION
  Report Type: 
  Country: None (occurrence: None)
  Receive Date: 20111122
  Receipt Date: 20111121
  Transmission Date: 20120403
  Serious: Yes (Death, Other)
  Sender: FDA-Public Use
  Company Number: ZA-PFIZER INC-2011284517

PATIENT
  Age: 80 Year

DRUGS (1)
  1. GEODON [Suspect]
     Dosage: 20 MG, UNK
     Route: 030

REACTIONS (2)
  - DYSTONIA [None]
  - DEATH [None]
